FAERS Safety Report 8096197-5 (Version None)
Quarter: 2012Q1

REPORT INFORMATION
  Report Type: 
  Country: None (occurrence: None)
  Receive Date: 20120129
  Receipt Date: 20111220
  Transmission Date: 20120608
  Serious: No
  Sender: FDA-Public Use
  Company Number: US-ABBOTT-11P-163-0885652-00

PATIENT
  Age: 50 Year
  Sex: Female

DRUGS (5)
  1. THYROID TAB [Concomitant]
     Indication: HYPOTHYROIDISM
  2. LEXAPRO [Concomitant]
     Indication: DEPRESSION
  3. HUMIRA [Suspect]
     Indication: RHEUMATOID ARTHRITIS
     Dates: start: 20111202
  4. AMBIEN [Concomitant]
     Indication: INSOMNIA
     Dosage: AT NIGHT
  5. M.V.I. [Concomitant]
     Indication: PRODUCT USED FOR UNKNOWN INDICATION
     Dosage: DAILY

REACTIONS (4)
  - OROPHARYNGEAL PAIN [None]
  - FEELING ABNORMAL [None]
  - EAR DISCOMFORT [None]
  - EAR PAIN [None]
